FAERS Safety Report 5570846-5 (Version None)
Quarter: 2007Q4

REPORT INFORMATION
  Report Type: 
  Country: None (occurrence: None)
  Receive Date: 20071221
  Receipt Date: 20071210
  Transmission Date: 20080405
  Serious: Yes (Hospitalization)
  Sender: FDA-Public Use
  Company Number: US-ROCHE-507985

PATIENT
  Age: 64 Year
  Sex: Male

DRUGS (2)
  1. RIBAVIRIN [Suspect]
     Dosage: FORM REPORTED AS PILLS. TOOK 4 PILLS PER DAY.
     Route: 065
     Dates: start: 20070314, end: 20071127
  2. PEG-INTERFERON A-2A (RO 25-8310) [Suspect]
     Dosage: FORMULATION REPORTED AS PREFILLED SYRINGE. REPORTEDLY USED 1 PREFILLED SYRINGE, ONE TIME PER WEEK.
     Route: 065
     Dates: start: 20070314, end: 20071127

REACTIONS (1)
  - CEREBROVASCULAR ACCIDENT [None]
